FAERS Safety Report 8396719-0 (Version None)
Quarter: 2012Q2

REPORT INFORMATION
  Report Type: 
  Country: None (occurrence: None)
  Receive Date: 20120530
  Receipt Date: 20120522
  Transmission Date: 20120825
  Serious: Yes (Other)
  Sender: FDA-Public Use
  Company Number: GR-PFIZER INC-2012123409

PATIENT
  Age: 32 Year
  Sex: Female

DRUGS (4)
  1. METHYLPREDNISOLONE [Suspect]
     Indication: ADRENOGENITAL SYNDROME
  2. HYDROCORTISONE [Suspect]
     Indication: ADRENOGENITAL SYNDROME
     Dosage: UNK
  3. FOLIC ACID [Concomitant]
     Dosage: 6 MG, UNK FREQUENCY
  4. ASPIRIN [Concomitant]
     Dosage: 80 MG, UNK

REACTIONS (3)
  - CUSHING'S SYNDROME [None]
  - PREMATURE SEPARATION OF PLACENTA [None]
  - PRE-ECLAMPSIA [None]
